FAERS Safety Report 16815008 (Version 1)
Quarter: 2019Q4

REPORT INFORMATION
  Report Type: Spontaneous
  Country: US (occurrence: US)
  Receive Date: 20190916
  Receipt Date: 20190916
  Transmission Date: 20200122
  Serious: Yes (Disabling)
  Sender: FDA-Public Use
  Company Number: None

PATIENT
  Age: 45 Year
  Sex: Female
  Weight: 65.25 kg

DRUGS (5)
  1. CALCIUM CHEWABLE [Concomitant]
  2. FLINTSONE VITAMINS [Concomitant]
  3. PROZAC [Concomitant]
     Active Substance: FLUOXETINE HYDROCHLORIDE
  4. AJOVY [Suspect]
     Active Substance: FREMANEZUMAB-VFRM
     Indication: MIGRAINE
     Dosage: ?          QUANTITY:1.5 INJECTION(S);OTHER FREQUENCY:1X MONTH;?
     Route: 058
     Dates: start: 20190408, end: 20190808
  5. B12 CHEWABLE [Concomitant]

REACTIONS (2)
  - Immunodeficiency [None]
  - Alopecia areata [None]

NARRATIVE: CASE EVENT DATE: 20190408
